FAERS Safety Report 11651111 (Version 1)
Quarter: 2015Q4

REPORT INFORMATION
  Report Type: Spontaneous
  Country: US (occurrence: US)
  Receive Date: 20151021
  Receipt Date: 20151021
  Transmission Date: 20160304
  Serious: No
  Sender: FDA-Public Use
  Company Number: US-BAUSCH-BL-2015-018544

PATIENT
  Age: 73 Year
  Sex: Male

DRUGS (4)
  1. WELLBUTRIN [Suspect]
     Active Substance: BUPROPION HYDROCHLORIDE
     Indication: DEPRESSION
     Route: 065
     Dates: start: 20131220, end: 20150304
  2. NUEDEXTA [Suspect]
     Active Substance: DEXTROMETHORPHAN HYDROBROMIDE\QUINIDINE SULFATE
     Indication: AFFECT LABILITY
     Route: 065
     Dates: start: 20141112, end: 20150304
  3. ZYPREXA [Suspect]
     Active Substance: OLANZAPINE
     Indication: AGITATION
     Route: 065
     Dates: end: 201412
  4. LEXAPRO [Concomitant]
     Active Substance: ESCITALOPRAM OXALATE
     Indication: PRODUCT USED FOR UNKNOWN INDICATION
     Dates: start: 201401

REACTIONS (1)
  - Weight decreased [Recovered/Resolved]

NARRATIVE: CASE EVENT DATE: 201501
